FAERS Safety Report 9932305 (Version 1)
Quarter: 2014Q1

REPORT INFORMATION
  Report Type: Spontaneous
  Country: US (occurrence: US)
  Receive Date: 20140228
  Receipt Date: 20140228
  Transmission Date: 20141002
  Serious: No
  Sender: FDA-Public Use
  Company Number: US-GLAXOSMITHKLINE-A0972763A

PATIENT
  Age: 34 Year
  Sex: Female
  Weight: 59.5 kg

DRUGS (4)
  1. LAMICTAL [Suspect]
     Indication: EPILEPSY
     Dosage: 150MG PER DAY
     Route: 048
     Dates: start: 20100803
  2. DEPAKOTE ER [Concomitant]
     Indication: EPILEPSY
     Dosage: 2000MGD PER DAY
     Route: 048
     Dates: start: 2009
  3. FOLIC ACID [Concomitant]
     Indication: SUPPLEMENTATION THERAPY
     Dosage: 4MGD PER DAY
     Route: 048
  4. KLONOPIN [Concomitant]
     Indication: EPILEPSY
     Dosage: .25MGD PER DAY
     Route: 048
     Dates: start: 20110526

REACTIONS (2)
  - Live birth [Unknown]
  - Exposure during pregnancy [Unknown]
